FAERS Safety Report 18978296 (Version 1)
Quarter: 2021Q1

REPORT INFORMATION
  Report Type: Spontaneous
  Country: US (occurrence: US)
  Receive Date: 20210307
  Receipt Date: 20210307
  Transmission Date: 20210420
  Serious: No
  Sender: FDA-Public Use
  Company Number: US-TEVA-2021-US-1886271

PATIENT
  Age: 79 Year

DRUGS (2)
  1. CLONIDINE. [Suspect]
     Active Substance: CLONIDINE
     Indication: BLOOD PRESSURE SYSTOLIC INCREASED
     Route: 065
  2. CLONIDINE HYDROCHLORIDE TRANSDERMAL SYSTEM [Suspect]
     Active Substance: CLONIDINE HYDROCHLORIDE
     Route: 062

REACTIONS (8)
  - Blood pressure fluctuation [Unknown]
  - Rash papular [Unknown]
  - Withdrawal syndrome [Unknown]
  - Application site pruritus [Unknown]
  - Dizziness [Recovered/Resolved]
  - Application site swelling [Unknown]
  - Application site erythema [Not Recovered/Not Resolved]
  - Product dose omission issue [Unknown]
